FAERS Safety Report 7526491-5 (Version None)
Quarter: 2011Q2

REPORT INFORMATION
  Report Type: 
  Country: None (occurrence: None)
  Receive Date: 20110606
  Receipt Date: 20110526
  Transmission Date: 20111010
  Serious: Yes (Hospitalization)
  Sender: FDA-Public Use
  Company Number: AT-TEVA-265615ISR

PATIENT
  Sex: Male
  Weight: 64 kg

DRUGS (11)
  1. LENALIDOMIDE [Suspect]
     Route: 048
     Dates: start: 20110309, end: 20110329
  2. DEXAMETHASONE [Suspect]
     Indication: MULTIPLE MYELOMA
     Dates: start: 20101201
  3. LENALIDOMIDE [Suspect]
     Route: 048
     Dates: start: 20110209
  4. LEVOTHYROXINE SODIUM [Concomitant]
     Indication: HYPOTHYROIDISM
     Route: 048
  5. DEXAMETHASONE [Suspect]
     Dates: start: 20101229, end: 20110329
  6. LENALIDOMIDE [Suspect]
     Dosage: 25 MILLIGRAM;
     Route: 048
     Dates: start: 20101229, end: 20110111
  7. LENALIDOMIDE [Suspect]
     Indication: MULTIPLE MYELOMA
     Dosage: 25 MILLIGRAM;
     Route: 048
     Dates: start: 20101201, end: 20101201
  8. LEKOVIT CA [Concomitant]
     Indication: OSTEOPOROSIS PROPHYLAXIS
  9. HEPARIN SODIUM [Concomitant]
     Dosage: 5000 IU (INTERNATIONAL UNIT);
     Route: 058
     Dates: start: 20110127
  10. HEPARIN SODIUM [Concomitant]
     Route: 058
     Dates: start: 20110115, end: 20110126
  11. HEPARIN SODIUM [Concomitant]
     Indication: THROMBOSIS PROPHYLAXIS
     Dosage: 5000 IU (INTERNATIONAL UNIT);
     Route: 058
     Dates: start: 20110110, end: 20110114

REACTIONS (2)
  - TRANSIENT ISCHAEMIC ATTACK [None]
  - PYREXIA [None]
